FAERS Safety Report 17054156 (Version 10)
Quarter: 2023Q1

REPORT INFORMATION
  Report Type: Report from Study
  Country: HU (occurrence: HU)
  Receive Date: 20191120
  Receipt Date: 20230102
  Transmission Date: 20230417
  Serious: Yes (Other)
  Sender: FDA-Public Use
  Company Number: NVSC2019HU040150

PATIENT
  Age: 20 Month
  Sex: Male
  Weight: 9.2 kg

DRUGS (4)
  1. ZOLGENSMA [Suspect]
     Active Substance: ONASEMNOGENE ABEPARVOVEC-XIOI
     Indication: Spinal muscular atrophy
     Dosage: UNK, ONCE/SINGLE (2 PIECES OF 5.5ML AND 5 PIECES OF 8.3 ML)
     Route: 042
     Dates: start: 20191029
  2. PREDNISOLONE [Suspect]
     Active Substance: PREDNISOLONE
     Indication: Product used for unknown indication
     Dosage: UNK
     Route: 054
  3. FAMOTIDINE [Concomitant]
     Active Substance: FAMOTIDINE
     Indication: Prophylaxis against gastrointestinal ulcer
     Dosage: UNK, QD (1MG/ BODY WEIGHT)
     Route: 065
  4. NUSINERSEN [Concomitant]
     Active Substance: NUSINERSEN
     Indication: Spinal muscular atrophy
     Dosage: UNK (DOSE: 6 UNK)
     Route: 065

REACTIONS (31)
  - Thrombocytopenia [Recovered/Resolved]
  - Granulocytopenia [Unknown]
  - Ocular hyperaemia [Unknown]
  - Pharyngeal inflammation [Unknown]
  - Leukopenia [Unknown]
  - Rash macular [Recovered/Resolved]
  - Granulocyte count decreased [Recovering/Resolving]
  - White blood cell count decreased [Unknown]
  - Hepatic enzyme increased [Unknown]
  - Pyrexia [Recovered/Resolved]
  - Pyrexia [Recovered/Resolved]
  - Platelet count decreased [Recovered/Resolved]
  - Platelet count decreased [Recovered/Resolved]
  - Hyperreflexia [Unknown]
  - Weight decreased [Recovered/Resolved]
  - Hypotonia [Unknown]
  - Weight increased [Unknown]
  - Crying [Unknown]
  - Decreased appetite [Recovered/Resolved]
  - Neutropenia [Unknown]
  - Blood lactate dehydrogenase increased [Recovering/Resolving]
  - Retching [Recovered/Resolved]
  - Decreased appetite [Unknown]
  - Upper respiratory tract infection [Unknown]
  - Vomiting [Recovered/Resolved]
  - Aspartate aminotransferase increased [Recovered/Resolved]
  - Pyrexia [Recovered/Resolved]
  - Alanine aminotransferase increased [Unknown]
  - Troponin I increased [Unknown]
  - Intentional product use issue [Unknown]
  - Transaminases increased [Unknown]

NARRATIVE: CASE EVENT DATE: 20191001
